FAERS Safety Report 8167977-2 (Version None)
Quarter: 2012Q1

REPORT INFORMATION
  Report Type: 
  Country: None (occurrence: None)
  Receive Date: 20120227
  Receipt Date: 20120216
  Transmission Date: 20120608
  Serious: Yes (Life-Threatening, Hospitalization)
  Sender: FDA-Public Use
  Company Number: FR-GLAXOSMITHKLINE-B0781917A

PATIENT
  Sex: Female

DRUGS (5)
  1. OMEPRAZOLE [Concomitant]
  2. PLAVIX [Concomitant]
  3. ANAFRANIL [Concomitant]
  4. TERCIAN [Concomitant]
  5. ARIXTRA [Suspect]
     Indication: OEDEMA PERIPHERAL
     Dosage: 2.5MG PER DAY
     Route: 058
     Dates: start: 20120106, end: 20120112

REACTIONS (2)
  - SUBDURAL HAEMATOMA [None]
  - OFF LABEL USE [None]
